FAERS Safety Report 5157174-7 (Version None)
Quarter: 2006Q4

REPORT INFORMATION
  Report Type: 
  Country: None (occurrence: None)
  Receive Date: 20061115
  Receipt Date: 20061102
  Transmission Date: 20070319
  Serious: Yes (Hospitalization)
  Sender: FDA-Public Use
  Company Number: 2006000668

PATIENT
  Sex: Female

DRUGS (1)
  1. ROXANOL 100 [Suspect]
     Dosage: ONCE

REACTIONS (4)
  - ACCIDENTAL EXPOSURE [None]
  - CHEST PAIN [None]
  - DYSPNOEA [None]
  - HYPERHIDROSIS [None]
